FAERS Safety Report 9800954 (Version 1)
Quarter: 2014Q1

REPORT INFORMATION
  Report Type: Spontaneous
  Country: GB (occurrence: GB)
  Receive Date: 20140107
  Receipt Date: 20140107
  Transmission Date: 20141002
  Serious: Yes (Other)
  Sender: FDA-Public Use
  Company Number: GB-JNJFOC-20140101048

PATIENT
  Age: 1 Year
  Sex: Female
  Weight: 10 kg

DRUGS (4)
  1. DAKTARIN [Suspect]
     Route: 061
  2. DAKTARIN [Suspect]
     Indication: PRODUCT USED FOR UNKNOWN INDICATION
     Route: 061
     Dates: start: 20131205, end: 20131206
  3. NITROFURANTOIN [Concomitant]
     Route: 065
  4. TRIMETHOPRIM [Concomitant]
     Route: 065

REACTIONS (2)
  - Blister [Not Recovered/Not Resolved]
  - Excoriation [Not Recovered/Not Resolved]
